FAERS Safety Report 4575470-9 (Version None)
Quarter: 2005Q1

REPORT INFORMATION
  Report Type: 
  Country: None (occurrence: None)
  Receive Date: 20050209
  Receipt Date: 20050203
  Transmission Date: 20050727
  Serious: Yes (Life-Threatening)
  Sender: FDA-Public Use
  Company Number: 200510278EU

PATIENT
  Age: 58 Year
  Sex: Male

DRUGS (6)
  1. SEGURIL [Suspect]
     Route: 048
     Dates: end: 20040616
  2. ALDACTONE [Concomitant]
     Dates: end: 20040615
  3. NORFLOXACIN [Concomitant]
     Route: 048
  4. SUMIAL [Concomitant]
     Route: 048
  5. OPIREN [Concomitant]
     Route: 048
  6. DUPHALAC [Concomitant]
     Route: 048

REACTIONS (1)
  - HEPATIC ENCEPHALOPATHY [None]
